FAERS Safety Report 16551904 (Version 1)
Quarter: 2019Q3

REPORT INFORMATION
  Report Type: Spontaneous
  Country: GB (occurrence: GB)
  Receive Date: 20190710
  Receipt Date: 20190710
  Transmission Date: 20191004
  Serious: Yes (Life-Threatening, Other)
  Sender: FDA-Public Use
  Company Number: GB-PFIZER INC-2019291028

PATIENT
  Age: 35 Year
  Sex: Female
  Weight: 70 kg

DRUGS (2)
  1. SODIUM LACTATE. [Concomitant]
     Active Substance: SODIUM LACTATE
     Indication: POSTPARTUM HAEMORRHAGE
     Dosage: 2 L, UNK
  2. MISOPROSTOL. [Suspect]
     Active Substance: MISOPROSTOL
     Indication: POSTPARTUM HAEMORRHAGE
     Dosage: 800 UG, UNK
     Route: 060

REACTIONS (8)
  - Blood lactic acid increased [Recovered/Resolved]
  - Troponin increased [Recovered/Resolved]
  - Product use in unapproved indication [Unknown]
  - Chills [Recovered/Resolved]
  - Hyperpyrexia [Recovered/Resolved]
  - Tachycardia [Recovered/Resolved]
  - Off label use [Unknown]
  - Livedo reticularis [Recovered/Resolved]

NARRATIVE: CASE EVENT DATE: 20190606
